FAERS Safety Report 9626359 (Version 1)
Quarter: 2013Q4

REPORT INFORMATION
  Report Type: Report from Study
  Country: US (occurrence: US)
  Receive Date: 20131016
  Receipt Date: 20131016
  Transmission Date: 20140711
  Serious: Yes (Hospitalization, Other)
  Sender: FDA-Public Use
  Company Number: US-ALEXION PHARMACEUTICALS INC.-A201302615

PATIENT
  Sex: Female

DRUGS (2)
  1. SOLIRIS [Suspect]
     Indication: PAROXYSMAL NOCTURNAL HAEMOGLOBINURIA
     Dosage: UNK
     Route: 042
     Dates: start: 20110301
  2. SOLIRIS [Suspect]
     Dosage: 900 MG, Q2W
     Route: 042

REACTIONS (6)
  - Neutrophil count decreased [Unknown]
  - Transfusion [Unknown]
  - Myelodysplastic syndrome [Unknown]
  - Dyspnoea [Unknown]
  - Mouth ulceration [Unknown]
  - Fatigue [Unknown]
